FAERS Safety Report 7929777-5 (Version None)
Quarter: 2011Q4

REPORT INFORMATION
  Report Type: 
  Country: None (occurrence: None)
  Receive Date: 20111121
  Receipt Date: 20111115
  Transmission Date: 20120403
  Serious: Yes (Death, Other)
  Sender: FDA-Public Use
  Company Number: PHEH2011US009550

PATIENT
  Sex: Male

DRUGS (3)
  1. BLOOD TRANSFUSION, AUXILIARY PRODUCTS [Concomitant]
  2. NEUPOGEN [Concomitant]
     Indication: NEUTROPENIA
  3. EXJADE [Suspect]
     Indication: IRON OVERLOAD
     Dosage: 1000 MG, DAILY
     Route: 048
     Dates: start: 20090514, end: 20090821

REACTIONS (10)
  - LEUKOPENIA [None]
  - PLEURAL EFFUSION [None]
  - BLOOD PRESSURE DECREASED [None]
  - OROPHARYNGEAL NEOPLASM BENIGN [None]
  - DIARRHOEA [None]
  - ASTHENIA [None]
  - DEATH [None]
  - GENERAL PHYSICAL HEALTH DETERIORATION [None]
  - NEUTROPENIA [None]
  - DYSPNOEA [None]
